FAERS Safety Report 12622375 (Version 2)
Quarter: 2016Q4

REPORT INFORMATION
  Report Type: Report from Study
  Country: US (occurrence: US)
  Receive Date: 20160804
  Receipt Date: 20161223
  Transmission Date: 20170207
  Serious: Yes (Life-Threatening, Hospitalization, Other)
  Sender: FDA-Public Use
  Company Number: US-SA-2016SA123268

PATIENT
  Age: 39 Year
  Sex: Male

DRUGS (2)
  1. LEMTRADA [Suspect]
     Active Substance: ALEMTUZUMAB
     Indication: MULTIPLE SCLEROSIS
     Route: 041
     Dates: start: 20160627, end: 20160629
  2. LEMTRADA [Suspect]
     Active Substance: ALEMTUZUMAB
     Indication: MULTIPLE SCLEROSIS
     Route: 041
     Dates: start: 20160808, end: 20160809

REACTIONS (8)
  - Palpitations [Not Recovered/Not Resolved]
  - Progressive multiple sclerosis [Unknown]
  - Rash generalised [Recovering/Resolving]
  - Chest pain [Not Recovered/Not Resolved]
  - Ventricular fibrillation [Unknown]
  - Heart rate irregular [Not Recovered/Not Resolved]
  - Drug ineffective [Unknown]
  - Musculoskeletal disorder [Unknown]

NARRATIVE: CASE EVENT DATE: 2016
